FAERS Safety Report 14710328 (Version 1)
Quarter: 2018Q2

REPORT INFORMATION
  Report Type: Spontaneous
  Country: US (occurrence: US)
  Receive Date: 20180403
  Receipt Date: 20180403
  Transmission Date: 20180711
  Serious: No
  Sender: FDA-Public Use
  Company Number: US-ROCHE-1957694

PATIENT
  Sex: Male

DRUGS (2)
  1. ERIVEDGE [Suspect]
     Active Substance: VISMODEGIB
     Indication: BASAL CELL CARCINOMA
     Dosage: UNKNOWN DETAILS; HAS BEEN OFF AND ON FOR 5 YRS
     Route: 048
     Dates: start: 2012
  2. ERIVEDGE [Suspect]
     Active Substance: VISMODEGIB
     Dosage: 1 TAB 4-5 TIMES A WEEK
     Route: 048
     Dates: start: 20170524

REACTIONS (2)
  - Neuralgia [Unknown]
  - Neoplasm progression [Unknown]
